FAERS Safety Report 21715258 (Version 1)
Quarter: 2022Q4

REPORT INFORMATION
  Report Type: Spontaneous
  Country: US (occurrence: None)
  Receive Date: 20221209
  Receipt Date: 20221209
  Transmission Date: 20230113
  Serious: No
  Sender: FDA-Public Use
  Company Number: None

PATIENT
  Age: 52 Year
  Sex: Male
  Weight: 78.75 kg

DRUGS (1)
  1. ROCEPHIN [Suspect]
     Active Substance: CEFTRIAXONE SODIUM
     Indication: Infection
     Dates: start: 20221122, end: 20221122

REACTIONS (5)
  - Stomatitis [None]
  - Glossitis [None]
  - Rash maculo-papular [None]
  - Therapeutic response unexpected [None]
  - Musculoskeletal discomfort [None]

NARRATIVE: CASE EVENT DATE: 20221124
